FAERS Safety Report 9028960 (Version 2)
Quarter: 2013Q4

REPORT INFORMATION
  Report Type: Spontaneous
  Country: US (occurrence: US)
  Receive Date: 20130124
  Receipt Date: 20131024
  Transmission Date: 20140711
  Serious: Yes (Hospitalization)
  Sender: FDA-Public Use
  Company Number: US-BAYER-2013-008192

PATIENT
  Age: 46 Year
  Sex: Female
  Weight: 90.7 kg

DRUGS (10)
  1. YAZ [Suspect]
     Dosage: UNK
  2. YASMIN [Suspect]
     Dosage: UNK
  3. OCELLA [Suspect]
     Dosage: UNK
  4. BEYAZ [Suspect]
     Dosage: UNK
  5. WELLBUTRIN XL [Concomitant]
     Indication: EX-TOBACCO USER
     Dosage: 300 MG, DAILY
     Route: 048
     Dates: start: 20111018
  6. PROTONIX [Concomitant]
     Dosage: 40 MG, DAILY
     Route: 048
     Dates: start: 20111018
  7. PERCOCET [Concomitant]
     Indication: PAIN
     Dosage: 5-325 MG, Q4HR, PRN
     Route: 048
     Dates: start: 20111018
  8. VALIUM [Concomitant]
     Dosage: 5 MG, DAILY
     Route: 048
     Dates: start: 20111018
  9. CEFADROXIL [Concomitant]
     Dosage: 500 MG, UNK
  10. MELOXICAM [Concomitant]
     Dosage: 7.5 MG, UNK

REACTIONS (1)
  - Deep vein thrombosis [Recovered/Resolved]
